FAERS Safety Report 24962634 (Version 1)
Quarter: 2025Q1

REPORT INFORMATION
  Report Type: Other
  Country: US (occurrence: US)
  Receive Date: 20250212
  Receipt Date: 20250212
  Transmission Date: 20250409
  Serious: Yes (Other)
  Sender: AVONDALE PHARMACEUTICALS
  Company Number: US-Avondale Pharmaceuticals, LLC-2170995

PATIENT
  Age: 58 Year
  Sex: Female

DRUGS (1)
  1. MOBIC [Suspect]
     Active Substance: MELOXICAM
     Indication: Osteoarthritis

REACTIONS (1)
  - Intestinal diaphragm disease [Unknown]
